FAERS Safety Report 4675504-7 (Version None)
Quarter: 2005Q2

REPORT INFORMATION
  Report Type: 
  Country: None (occurrence: None)
  Receive Date: 20050527
  Receipt Date: 20050324
  Transmission Date: 20051028
  Serious: No
  Sender: FDA-Public Use
  Company Number: US-BRISTOL-MYERS SQUIBB COMPANY-12911871

PATIENT
  Age: 73 Year
  Sex: Female

DRUGS (2)
  1. ABILIFY [Suspect]
  2. LEXAPRO [Concomitant]

REACTIONS (2)
  - BRUXISM [None]
  - TARDIVE DYSKINESIA [None]
